FAERS Safety Report 19803535 (Version 2)
Quarter: 2021Q3

REPORT INFORMATION
  Report Type: Spontaneous
  Country: JP (occurrence: JP)
  Receive Date: 20210908
  Receipt Date: 20210928
  Transmission Date: 20211014
  Serious: Yes (Death)
  Sender: FDA-Public Use
  Company Number: JP-BEH-2021135388

PATIENT
  Age: 79 Year
  Sex: Male

DRUGS (6)
  1. DIART [Concomitant]
     Indication: OEDEMA
     Route: 065
  2. ASPARA K [Concomitant]
     Active Substance: POTASSIUM ASPARTATE
     Route: 065
  3. LASIX [Concomitant]
     Active Substance: FUROSEMIDE
     Route: 065
  4. HIZENTRA [Suspect]
     Active Substance: HUMAN IMMUNOGLOBULIN G
     Indication: CHRONIC INFLAMMATORY DEMYELINATING POLYRADICULONEUROPATHY
     Dosage: 20 GRAM (4GX5 VIALS), QW
     Route: 058
     Dates: start: 20210623
  5. HIZENTRA [Suspect]
     Active Substance: HUMAN IMMUNOGLOBULIN G
     Dosage: 20 GRAM (4GX5VIALS), QD
     Route: 058
     Dates: start: 20210818, end: 20210818
  6. CRAVIT [Concomitant]
     Active Substance: LEVOFLOXACIN
     Route: 065

REACTIONS (1)
  - Chronic respiratory failure [Fatal]

NARRATIVE: CASE EVENT DATE: 20210825
